FAERS Safety Report 20655485 (Version 1)
Quarter: 2022Q1

REPORT INFORMATION
  Report Type: Report from Study
  Country: US (occurrence: US)
  Receive Date: 20220330
  Receipt Date: 20220330
  Transmission Date: 20220423
  Serious: Yes (Hospitalization, Other)
  Sender: FDA-Public Use
  Company Number: US-TAKEDA-US202019615

PATIENT
  Sex: Male
  Weight: 63 kg

DRUGS (18)
  1. HUMAN IMMUNOGLOBULIN G [Suspect]
     Active Substance: HUMAN IMMUNOGLOBULIN G
     Indication: Immunodeficiency common variable
     Dosage: 30 GRAM, Q2WEEKS
     Route: 042
     Dates: start: 20090917
  2. HUMAN IMMUNOGLOBULIN G [Suspect]
     Active Substance: HUMAN IMMUNOGLOBULIN G
     Indication: Congenital hypogammaglobulinaemia
     Dosage: 30 GRAM, Q4WEEKS
     Route: 042
     Dates: start: 20190208
  3. HUMAN IMMUNOGLOBULIN G [Suspect]
     Active Substance: HUMAN IMMUNOGLOBULIN G
     Dosage: 30 GRAM, Q4WEEKS
     Route: 042
     Dates: start: 20090917
  4. ACETAMINOPHEN [Concomitant]
     Active Substance: ACETAMINOPHEN
  5. DIPHENHYDRAMINE [Concomitant]
     Active Substance: DIPHENHYDRAMINE
  6. LIDOCAINE\PRILOCAINE [Concomitant]
     Active Substance: LIDOCAINE\PRILOCAINE
  7. SODIUM CHLORIDE [Concomitant]
     Active Substance: SODIUM CHLORIDE
  8. EPINEPHRINE [Concomitant]
     Active Substance: EPINEPHRINE
  9. LAMICTAL [Concomitant]
     Active Substance: LAMOTRIGINE
  10. VITAMINS [Concomitant]
     Active Substance: VITAMINS
  11. KEPPRA [Concomitant]
     Active Substance: LEVETIRACETAM
  12. RANITIDINE [Concomitant]
     Active Substance: RANITIDINE
  13. VITAMINS [Concomitant]
     Active Substance: VITAMINS
  14. CALCIUM ACETATE [Concomitant]
     Active Substance: CALCIUM ACETATE
  15. VITAMIN C [Concomitant]
     Active Substance: ASCORBIC ACID
  16. TUMS EX [Concomitant]
     Active Substance: CALCIUM CARBONATE
  17. COD LIVER OIL [Concomitant]
     Active Substance: COD LIVER OIL
  18. CHILDRENS TYLENOL [Concomitant]
     Active Substance: ACETAMINOPHEN

REACTIONS (3)
  - Seizure [Unknown]
  - Unevaluable event [Unknown]
  - Stomatitis [Unknown]
